FAERS Safety Report 7309126-6 (Version None)
Quarter: 2011Q1

REPORT INFORMATION
  Report Type: 
  Country: None (occurrence: None)
  Receive Date: 20110223
  Receipt Date: 20110209
  Transmission Date: 20110831
  Serious: Yes (Hospitalization)
  Sender: FDA-Public Use
  Company Number: PHHY2011US10696

PATIENT
  Age: 79 Year
  Sex: Female

DRUGS (6)
  1. MYCOPHENOLATE MOFETIL [Concomitant]
  2. PREDNISONE [Suspect]
     Dosage: 20 MG, QD
  3. PREDNISONE [Suspect]
     Dosage: INCREASE BY 30%
  4. PYRIDOSTIGMINE BROMIDE [Concomitant]
     Dosage: 60 MG, TID
  5. LEVOTHYROXINE SODIUM [Concomitant]
     Dosage: 50 MG, QD
  6. CARVEDILOL [Concomitant]
     Dosage: 6.25 MG, BID

REACTIONS (20)
  - PRODUCTIVE COUGH [None]
  - CELLULITIS [None]
  - LUNG CONSOLIDATION [None]
  - LIVER FUNCTION TEST ABNORMAL [None]
  - INFLAMMATION [None]
  - ASTHENIA [None]
  - HEART RATE INCREASED [None]
  - DYSPNOEA [None]
  - SKIN LESION [None]
  - HYPOXIA [None]
  - RESPIRATORY ALKALOSIS [None]
  - PAIN [None]
  - DISSEMINATED CRYPTOCOCCOSIS [None]
  - STEROID WITHDRAWAL SYNDROME [None]
  - HYPERCALCAEMIA [None]
  - IMMUNE RECONSTITUTION SYNDROME [None]
  - PNEUMONIA [None]
  - RESPIRATORY DISTRESS [None]
  - EYELID PTOSIS [None]
  - PRURITUS [None]
